FAERS Safety Report 7817959-2 (Version None)
Quarter: 2011Q4

REPORT INFORMATION
  Report Type: 
  Country: None (occurrence: None)
  Receive Date: 20111017
  Receipt Date: 20111005
  Transmission Date: 20120403
  Serious: Yes (Other)
  Sender: FDA-Public Use
  Company Number: BR-VIIV HEALTHCARE LIMITED-B0749982A

PATIENT
  Sex: Female
  Weight: 72.5 kg

DRUGS (6)
  1. DARUNAVIR ETHANOLATE [Concomitant]
  2. RALTEGRAVIR [Concomitant]
  3. TENOFOVIR DISOPROXIL FUMARATE [Concomitant]
  4. MARAVIROC [Suspect]
     Indication: HIV INFECTION
     Dosage: 150MG TWICE PER DAY
     Route: 048
     Dates: start: 20080703
  5. LAMIVUDINE [Concomitant]
  6. RITONAVIR [Concomitant]

REACTIONS (1)
  - BONE NEOPLASM MALIGNANT [None]
